FAERS Safety Report 6737643-6 (Version None)
Quarter: 2010Q2

REPORT INFORMATION
  Report Type: 
  Country: None (occurrence: None)
  Receive Date: 20100521
  Receipt Date: 20100521
  Transmission Date: 20101027
  Serious: Yes (Life-Threatening, Other)
  Sender: FDA-Public Use
  Company Number: None

PATIENT
  Sex: Female
  Weight: 90.7194 kg

DRUGS (6)
  1. EFFEXOR XR [Suspect]
     Indication: MAJOR DEPRESSION
     Dates: start: 20060501, end: 20100517
  2. SEROQUEL [Concomitant]
  3. MIRAPEX [Concomitant]
  4. PROTONIX [Concomitant]
  5. HYDROCODONE [Concomitant]
  6. PREVACID [Concomitant]

REACTIONS (13)
  - ABASIA [None]
  - ABDOMINAL PAIN UPPER [None]
  - COGNITIVE DISORDER [None]
  - COLD SWEAT [None]
  - CRYING [None]
  - HEADACHE [None]
  - IMPAIRED DRIVING ABILITY [None]
  - NAUSEA [None]
  - PALPITATIONS [None]
  - PARAESTHESIA [None]
  - TREMOR [None]
  - VERTIGO [None]
  - VISUAL IMPAIRMENT [None]
